FAERS Safety Report 18134972 (Version 2)
Quarter: 2021Q1

REPORT INFORMATION
  Report Type: Spontaneous
  Country: IN (occurrence: IN)
  Receive Date: 20200811
  Receipt Date: 20210129
  Transmission Date: 20210419
  Serious: Yes (Death, Life-Threatening)
  Sender: FDA-Public Use
  Company Number: IN-CELGENEUS-IND-20200801339

PATIENT
  Age: 64 Year
  Sex: Male

DRUGS (38)
  1. ABRAXANE [Suspect]
     Active Substance: PACLITAXEL
     Dosage: 2160
     Route: 065
     Dates: start: 20190618, end: 20190718
  2. PLACEBO [Concomitant]
     Active Substance: UNSPECIFIED INGREDIENT
     Indication: NON-SMALL CELL LUNG CANCER STAGE IV
     Route: 048
     Dates: start: 20190916, end: 20191013
  3. PLACEBO [Concomitant]
     Active Substance: UNSPECIFIED INGREDIENT
     Route: 048
     Dates: start: 20191210, end: 20200109
  4. PLACEBO [Concomitant]
     Active Substance: UNSPECIFIED INGREDIENT
     Route: 048
     Dates: start: 20200110, end: 20200207
  5. PLACEBO [Concomitant]
     Active Substance: UNSPECIFIED INGREDIENT
     Route: 048
     Dates: start: 20200406, end: 20200427
  6. DURVALUMAB. [Concomitant]
     Active Substance: DURVALUMAB
     Dosage: 1500 MILLIGRAM (1800)
     Route: 042
     Dates: start: 20190618, end: 20190618
  7. CARBOPLATIN. [Concomitant]
     Active Substance: CARBOPLATIN
     Dosage: 650 MILLIGRAM (2600)
     Route: 042
     Dates: start: 20190823, end: 20190823
  8. ABRAXANE [Suspect]
     Active Substance: PACLITAXEL
     Dosage: 2160
     Route: 065
     Dates: start: 20190711, end: 20190711
  9. ABRAXANE [Suspect]
     Active Substance: PACLITAXEL
     Route: 065
     Dates: start: 20190823, end: 20190823
  10. CARBOPLATIN. [Concomitant]
     Active Substance: CARBOPLATIN
     Dosage: 650 MILLIGRAM (2600)
     Route: 042
     Dates: start: 20190618, end: 20190618
  11. CALCIUM CITRATE [Concomitant]
     Active Substance: CALCIUM CITRATE
     Indication: METASTASES TO BONE
     Route: 048
     Dates: start: 20190527
  12. ABRAXANE [Suspect]
     Active Substance: PACLITAXEL
     Dosage: 2160
     Route: 065
     Dates: start: 20190603, end: 20190603
  13. ABRAXANE [Suspect]
     Active Substance: PACLITAXEL
     Dosage: 2160
     Route: 065
     Dates: start: 20190907, end: 20190907
  14. ABRAXANE [Suspect]
     Active Substance: PACLITAXEL
     Route: 065
     Dates: start: 20190703, end: 20190703
  15. ABRAXANE [Suspect]
     Active Substance: PACLITAXEL
     Dosage: 21602160
     Route: 065
     Dates: start: 20190829, end: 20190829
  16. DURVALUMAB. [Concomitant]
     Active Substance: DURVALUMAB
     Indication: NON-SMALL CELL LUNG CANCER STAGE IV
     Dosage: 1500 MILLIGRAM (1800)
     Route: 042
     Dates: start: 20190527, end: 20190527
  17. DURVALUMAB. [Concomitant]
     Active Substance: DURVALUMAB
     Dosage: 1500 MILLIGRAM (1800)
     Route: 042
     Dates: start: 20190711, end: 20190711
  18. CARBOPLATIN. [Concomitant]
     Active Substance: CARBOPLATIN
     Dosage: 650 MILLIGRAM (2600)
     Route: 042
     Dates: start: 20190711, end: 20190711
  19. ABRAXANE [Suspect]
     Active Substance: PACLITAXEL
     Dosage: 2160
     Route: 065
     Dates: start: 20190610, end: 20190710
  20. DURVALUMAB. [Concomitant]
     Active Substance: DURVALUMAB
     Dosage: 1500 MILLIGRAM (1800)
     Route: 042
     Dates: start: 20190916, end: 20190916
  21. DURVALUMAB. [Concomitant]
     Active Substance: DURVALUMAB
     Dosage: 1500 MILLIGRAM (1800)
     Route: 042
     Dates: start: 20141014, end: 20141014
  22. ABRAXANE [Suspect]
     Active Substance: PACLITAXEL
     Dosage: 2160
     Route: 065
     Dates: start: 20190816, end: 20190816
  23. PLACEBO [Concomitant]
     Active Substance: UNSPECIFIED INGREDIENT
     Route: 048
     Dates: start: 20191014, end: 20191111
  24. DURVALUMAB. [Concomitant]
     Active Substance: DURVALUMAB
     Dosage: 1500 MILLIGRAM (1800)
     Route: 042
     Dates: start: 20191210, end: 20191210
  25. DURVALUMAB. [Concomitant]
     Active Substance: DURVALUMAB
     Dosage: 1500 MILLIGRAM (1800)
     Route: 042
     Dates: start: 20200110, end: 20200110
  26. DURVALUMAB. [Concomitant]
     Active Substance: DURVALUMAB
     Dosage: 1500 MILLIGRAM (1800)
     Route: 042
     Dates: start: 20200406, end: 20200406
  27. ABRAXANE [Suspect]
     Active Substance: PACLITAXEL
     Indication: NON-SMALL CELL LUNG CANCER STAGE IV
     Dosage: 2160
     Route: 065
     Dates: start: 20190527, end: 20190527
  28. ABRAXANE [Suspect]
     Active Substance: PACLITAXEL
     Dosage: 2160
     Route: 065
     Dates: start: 20190624, end: 20190624
  29. DURVALUMAB. [Concomitant]
     Active Substance: DURVALUMAB
     Dosage: 1500 MILLIGRAM (1800)
     Route: 042
     Dates: start: 20190823, end: 20190823
  30. DURVALUMAB. [Concomitant]
     Active Substance: DURVALUMAB
     Dosage: 1500 MILLIGRAM (1800)
     Route: 042
     Dates: start: 20200207, end: 20200207
  31. ABRAXANE [Suspect]
     Active Substance: PACLITAXEL
     Dosage: 2160
     Route: 065
     Dates: start: 20190808, end: 20190808
  32. PLACEBO [Concomitant]
     Active Substance: UNSPECIFIED INGREDIENT
     Route: 048
     Dates: start: 20191112, end: 20191209
  33. PLACEBO [Concomitant]
     Active Substance: UNSPECIFIED INGREDIENT
     Route: 048
     Dates: start: 20200207, end: 20200306
  34. PLACEBO [Concomitant]
     Active Substance: UNSPECIFIED INGREDIENT
     Route: 048
     Dates: start: 20200306, end: 20200406
  35. DURVALUMAB. [Concomitant]
     Active Substance: DURVALUMAB
     Dosage: 1500 MILLIGRAM (1800)
     Route: 042
     Dates: start: 20191112, end: 20191112
  36. DURVALUMAB. [Concomitant]
     Active Substance: DURVALUMAB
     Dosage: 1500 MILLIGRAM (1800)
     Route: 042
     Dates: start: 20200306, end: 20200306
  37. CARBOPLATIN. [Concomitant]
     Active Substance: CARBOPLATIN
     Indication: NON-SMALL CELL LUNG CANCER STAGE IV
     Dosage: 650 MILLIGRAM (2600)
     Route: 042
     Dates: start: 20190527, end: 20190527
  38. VITAMIN D [Concomitant]
     Active Substance: VITAMIN D NOS
     Indication: METASTASES TO BONE
     Route: 048
     Dates: start: 20190527

REACTIONS (1)
  - Non-small cell lung cancer stage IV [Fatal]

NARRATIVE: CASE EVENT DATE: 20200513
